FAERS Safety Report 8241805-9 (Version None)
Quarter: 2012Q1

REPORT INFORMATION
  Report Type: 
  Country: None (occurrence: None)
  Receive Date: 20120328
  Receipt Date: 20120319
  Transmission Date: 20120608
  Serious: Yes (Hospitalization)
  Sender: FDA-Public Use
  Company Number: JP-ASTRAZENECA-2011SE24888

PATIENT
  Age: 84 Year
  Sex: Female
  Weight: 41 kg

DRUGS (7)
  1. ONON [Concomitant]
     Route: 048
     Dates: end: 20110304
  2. PULMICORT [Concomitant]
     Route: 055
     Dates: end: 20110304
  3. ECARD LD [Suspect]
     Indication: HYPERTENSION
     Route: 048
     Dates: start: 20110219, end: 20110304
  4. DIGOXIN [Concomitant]
     Route: 048
     Dates: end: 20110304
  5. BIO THREE [Concomitant]
     Route: 048
     Dates: end: 20110304
  6. FERROUS CITRATE [Concomitant]
     Indication: ANAEMIA
     Route: 048
     Dates: end: 20110304
  7. ARGAMATE [Concomitant]
     Route: 048
     Dates: end: 20110304

REACTIONS (3)
  - LIVER DISORDER [None]
  - MUSCULOSKELETAL PAIN [None]
  - ABDOMINAL DISCOMFORT [None]
